FAERS Safety Report 10231086 (Version 2)
Quarter: 2014Q2

REPORT INFORMATION
  Report Type: Spontaneous
  Country: BE (occurrence: BE)
  Receive Date: 20140611
  Receipt Date: 20140624
  Transmission Date: 20141212
  Serious: Yes (Other)
  Sender: FDA-Public Use
  Company Number: BE-AMGEN-BELSP2014043167

PATIENT
  Age: 61 Year
  Sex: Male
  Weight: 93.6 kg

DRUGS (4)
  1. VECTIBIX [Suspect]
     Indication: COLORECTAL CANCER METASTATIC
     Dosage: 512 UNK, Q2WK
     Route: 042
     Dates: start: 20130212, end: 20140603
  2. FOLINIC ACID [Concomitant]
     Indication: COLORECTAL CANCER METASTATIC
     Dosage: UNK
  3. 5 FU [Concomitant]
     Indication: COLORECTAL CANCER METASTATIC
     Dosage: UNK
  4. OXALIPLATIN [Concomitant]
     Indication: COLORECTAL CANCER METASTATIC
     Dosage: UNK

REACTIONS (13)
  - Skin toxicity [Recovering/Resolving]
  - Keratitis [Not Recovered/Not Resolved]
  - Rash pustular [Recovering/Resolving]
  - Punctate keratitis [Unknown]
  - Corneal dystrophy [Unknown]
  - Blister [Unknown]
  - Mucosal erosion [Unknown]
  - Rash [Unknown]
  - Pain of skin [Unknown]
  - Conjunctivitis [Unknown]
  - Pruritus [Unknown]
  - Visual acuity reduced [Unknown]
  - Conjunctival hyperaemia [Unknown]
